FAERS Safety Report 6924184-6 (Version None)
Quarter: 2010Q3

REPORT INFORMATION
  Report Type: 
  Country: None (occurrence: None)
  Receive Date: 20100812
  Receipt Date: 20100812
  Transmission Date: 20110219
  Serious: Yes (Hospitalization)
  Sender: FDA-Public Use
  Company Number: None

PATIENT
  Age: 54 Year
  Sex: Male
  Weight: 81.6475 kg

DRUGS (1)
  1. ATIVAN [Suspect]
     Indication: INSOMNIA
     Dosage: 2MM NIGHTLY PO
     Route: 048
     Dates: start: 20100207, end: 20100517

REACTIONS (11)
  - CHEST PAIN [None]
  - CHILLS [None]
  - DEPERSONALISATION [None]
  - DEPRESSION [None]
  - HEADACHE [None]
  - HYPOACUSIS [None]
  - MUSCULOSKELETAL PAIN [None]
  - NECK PAIN [None]
  - PAIN IN EXTREMITY [None]
  - TINNITUS [None]
  - VOMITING [None]
